FAERS Safety Report 21254136 (Version 4)
Quarter: 2022Q3

REPORT INFORMATION
  Report Type: Report from Study
  Country: CN (occurrence: CN)
  Receive Date: 20220825
  Receipt Date: 20220926
  Transmission Date: 20221026
  Serious: Yes (Hospitalization)
  Sender: FDA-Public Use
  Company Number: CN-GLAXOSMITHKLINE-CN2022GSK120913

PATIENT

DRUGS (54)
  1. BELANTAMAB MAFODOTIN [Suspect]
     Active Substance: BELANTAMAB MAFODOTIN
     Indication: Plasma cell myeloma
     Dosage: 2.5 MG/KG, CYC (150 MG)
     Route: 042
     Dates: start: 20220429, end: 20220429
  2. BELANTAMAB MAFODOTIN [Suspect]
     Active Substance: BELANTAMAB MAFODOTIN
     Dosage: 2.5 MG/KG, CYC (150 MG)
     Route: 042
     Dates: start: 20220520, end: 20220520
  3. BELANTAMAB MAFODOTIN [Suspect]
     Active Substance: BELANTAMAB MAFODOTIN
     Dosage: 2.5 MG/KG, CYC (150 MG)
     Route: 042
     Dates: start: 20220610, end: 20220610
  4. BELANTAMAB MAFODOTIN [Suspect]
     Active Substance: BELANTAMAB MAFODOTIN
     Dosage: 2.5 MG/KG, CYC (150 MG)
     Route: 042
     Dates: start: 20220701, end: 20220701
  5. BELANTAMAB MAFODOTIN [Suspect]
     Active Substance: BELANTAMAB MAFODOTIN
     Dosage: 2.5 MG/KG, CYC (150 MG)
     Route: 042
     Dates: start: 20220722
  6. ETHAMSYLATE INJECTION [Concomitant]
     Indication: Retinal haemorrhage
     Dosage: 2 G, QD
     Route: 042
     Dates: start: 20220811
  7. ENTECAVIR CAPSULES [Concomitant]
     Indication: Hepatitis B
     Dosage: 0.5 MG, QD
     Route: 048
     Dates: start: 202203
  8. PROMETHAZINE [Concomitant]
     Active Substance: PROMETHAZINE HYDROCHLORIDE
     Indication: Prophylaxis
     Dosage: 25 MG, SINGLE
     Route: 030
     Dates: start: 20220610, end: 20220610
  9. PROMETHAZINE [Concomitant]
     Active Substance: PROMETHAZINE HYDROCHLORIDE
     Dosage: 25 MG, SINGLE
     Route: 030
     Dates: start: 20220701, end: 20220701
  10. PROMETHAZINE [Concomitant]
     Active Substance: PROMETHAZINE HYDROCHLORIDE
     Dosage: 25 MG, QD
     Route: 030
     Dates: start: 20220722, end: 20220722
  11. PROMETHAZINE [Concomitant]
     Active Substance: PROMETHAZINE HYDROCHLORIDE
     Dosage: 25 MG, QD
     Route: 030
     Dates: start: 20220429, end: 20220429
  12. PROMETHAZINE [Concomitant]
     Active Substance: PROMETHAZINE HYDROCHLORIDE
     Dosage: 25 UNK
     Route: 030
     Dates: start: 20220520, end: 20220520
  13. LORATADINE [Concomitant]
     Active Substance: LORATADINE
     Indication: Prophylaxis
     Dosage: 10 MG, SINGLE
     Route: 048
     Dates: start: 20220610, end: 20220610
  14. LORATADINE [Concomitant]
     Active Substance: LORATADINE
     Dosage: 10 MG, QD
     Route: 048
     Dates: start: 20220701, end: 20220701
  15. LORATADINE [Concomitant]
     Active Substance: LORATADINE
     Dosage: 10 MG, QD
     Route: 048
     Dates: start: 20220722, end: 20220722
  16. LORATADINE [Concomitant]
     Active Substance: LORATADINE
     Dosage: 10 MG, QD
     Route: 048
     Dates: start: 20220429, end: 20220429
  17. LORATADINE [Concomitant]
     Active Substance: LORATADINE
     Dosage: 10 UNK
     Route: 048
     Dates: start: 20220520, end: 20220520
  18. DEXAMETHASONE SODIUM PHOSPHATE [Concomitant]
     Active Substance: DEXAMETHASONE SODIUM PHOSPHATE
     Indication: Prophylaxis
     Dosage: 10 MG, SINGLE
     Route: 042
     Dates: start: 20220610, end: 20220610
  19. DEXAMETHASONE SODIUM PHOSPHATE [Concomitant]
     Active Substance: DEXAMETHASONE SODIUM PHOSPHATE
     Dosage: 10 UNK
     Route: 042
     Dates: start: 20220701, end: 20220701
  20. DEXAMETHASONE SODIUM PHOSPHATE [Concomitant]
     Active Substance: DEXAMETHASONE SODIUM PHOSPHATE
     Dosage: 10 MG, QD
     Route: 042
     Dates: start: 20220722
  21. DEXAMETHASONE SODIUM PHOSPHATE [Concomitant]
     Active Substance: DEXAMETHASONE SODIUM PHOSPHATE
     Dosage: 10 MG, QD
     Route: 042
     Dates: start: 20220429, end: 20220429
  22. DEXAMETHASONE SODIUM PHOSPHATE [Concomitant]
     Active Substance: DEXAMETHASONE SODIUM PHOSPHATE
     Dosage: 10 MG, QD
     Route: 042
     Dates: start: 20220520, end: 20220520
  23. PALONOSETRON HYDROCHLORIDE [Concomitant]
     Active Substance: PALONOSETRON HYDROCHLORIDE
     Indication: Prophylaxis
     Dosage: 0.25 MG, SINGLE
     Route: 042
     Dates: start: 20220610, end: 20220610
  24. PALONOSETRON HYDROCHLORIDE [Concomitant]
     Active Substance: PALONOSETRON HYDROCHLORIDE
     Dosage: 0.25 MG, QD
     Route: 042
     Dates: start: 20220701, end: 20220701
  25. PALONOSETRON HYDROCHLORIDE [Concomitant]
     Active Substance: PALONOSETRON HYDROCHLORIDE
     Dosage: 0.25 MG, QD
     Route: 042
     Dates: start: 20220722, end: 20220722
  26. PALONOSETRON HYDROCHLORIDE [Concomitant]
     Active Substance: PALONOSETRON HYDROCHLORIDE
     Dosage: 0.25 MG, QD
     Route: 042
     Dates: start: 20220429, end: 20220429
  27. PALONOSETRON HYDROCHLORIDE [Concomitant]
     Active Substance: PALONOSETRON HYDROCHLORIDE
     Dosage: 0.25 UNK
     Route: 042
     Dates: start: 20220520, end: 20220520
  28. RECOMBINANT HUMAN GRANULOCYTE COLONY STIMULATING FACTOR INJECTION [Concomitant]
     Indication: White blood cell count increased
     Dosage: 200 UG, SINGLE
     Route: 058
     Dates: start: 20220609, end: 20220609
  29. RECOMBINANT HUMAN GRANULOCYTE COLONY STIMULATING FACTOR INJECTION [Concomitant]
     Indication: Neutrophil count increased
     Dosage: 1.5 ML
     Route: 058
     Dates: start: 20220615, end: 20220615
  30. RECOMBINANT HUMAN GRANULOCYTE COLONY STIMULATING FACTOR INJECTION [Concomitant]
     Dosage: 150 UG
     Route: 058
     Dates: start: 20220520, end: 20220520
  31. SODIUM IBANDRONATE INJECTION [Concomitant]
     Indication: Bone disorder
     Dosage: 4 MG, SINGLE
     Route: 042
     Dates: start: 20220610, end: 20220610
  32. SODIUM IBANDRONATE INJECTION [Concomitant]
     Dosage: 4 MG, QD
     Route: 042
     Dates: start: 20220725, end: 20220725
  33. SODIUM IBANDRONATE INJECTION [Concomitant]
     Dosage: 4 UNK
     Route: 042
     Dates: start: 20220430, end: 20220430
  34. OMEPRAZOLE ENTERIC-COATED TABLETS [Concomitant]
     Indication: Gastrointestinal disorder prophylaxis
     Dosage: 20 MG
     Route: 048
     Dates: start: 2022, end: 20220507
  35. OMEPRAZOLE ENTERIC-COATED TABLETS [Concomitant]
     Dosage: PRN
     Route: 048
     Dates: start: 202207, end: 202207
  36. DEXTROSE [Concomitant]
     Active Substance: DEXTROSE
     Indication: Fluid replacement
     Dosage: 500 ML, QD
     Route: 042
     Dates: start: 20220616, end: 20220619
  37. DEXTROSE [Concomitant]
     Active Substance: DEXTROSE
     Dosage: 500 ML, SINGLE
     Route: 042
     Dates: start: 20220616, end: 20220616
  38. DEXTROSE [Concomitant]
     Active Substance: DEXTROSE
     Dosage: 1000 ML, QD
     Route: 042
     Dates: start: 20220429, end: 20220429
  39. DEXTROSE [Concomitant]
     Active Substance: DEXTROSE
     Dosage: 500 UNK
     Route: 042
     Dates: start: 20220501, end: 20220509
  40. SODIUM CHLORIDE [Concomitant]
     Active Substance: SODIUM CHLORIDE
     Indication: Fluid replacement
     Dosage: 500 ML, QD
     Route: 042
     Dates: start: 20220616, end: 20220619
  41. SODIUM CHLORIDE [Concomitant]
     Active Substance: SODIUM CHLORIDE
     Dosage: 500 ML, QD
     Route: 042
     Dates: start: 20220429, end: 20220429
  42. MOXIFLOXACIN HYDROCHLORIDE AND SODIUM CHLORIDE INJECTION [Concomitant]
     Indication: Infection
     Dosage: 0.4 G, SINGLE
     Route: 042
     Dates: start: 20220616, end: 20220616
  43. AMOXICILLIN SODIUM AND CLAVULANATE POTASSIUM FOR INJECTION [Concomitant]
     Indication: Infection
     Dosage: 1.2 G Q8H
     Route: 042
     Dates: start: 20220616, end: 20220624
  44. OSELTAMIVIR PHOSPHATE [Concomitant]
     Active Substance: OSELTAMIVIR PHOSPHATE
     Indication: Infection
     Dosage: 75 MG, BID
     Route: 048
     Dates: start: 20220616, end: 20220620
  45. POTASSIUM CHLORIDE SUSTAINED RELEASE TABLETS [Concomitant]
     Indication: Mineral supplementation
     Dosage: 1 G, TID
     Route: 048
     Dates: start: 20220620, end: 20220624
  46. RECOMBINANT HUMAN GRANULOCYTE COLONY STIMULATING FACTOR INJECTION [Concomitant]
     Indication: White blood cell count increased
     Dosage: 200 UG, SINGLE
     Route: 058
     Dates: start: 20220620, end: 20220620
  47. RECOMBINANT HUMAN GRANULOCYTE COLONY STIMULATING FACTOR INJECTION [Concomitant]
     Indication: Neutrophil count increased
     Dosage: 300 UNK
     Route: 058
     Dates: start: 20220506, end: 20220506
  48. HERBALS [Concomitant]
     Active Substance: HERBALS
     Indication: Cough
     Dosage: 1.8 G, BID
     Route: 048
     Dates: start: 20220621, end: 20220624
  49. RECOMBINANT HUMAN THROMBOPOIETIN INJECTION [Concomitant]
     Indication: Platelet count increased
     Dosage: 15000 UNITS, QD
     Route: 058
     Dates: start: 20220620, end: 20220624
  50. RECOMBINANT HUMAN THROMBOPOIETIN INJECTION [Concomitant]
     Dosage: 15000 UNITS
     Route: 058
     Dates: start: 20220507, end: 20220510
  51. IBUPROFEN SUSPENSION [Concomitant]
     Indication: Pyrexia
     Dosage: 3 GTT, TID
     Route: 048
     Dates: start: 20220616, end: 20220619
  52. FLURBIPROFEN CATAPLASMS [Concomitant]
     Indication: Pain
     Dosage: PATCH
     Route: 062
     Dates: start: 202207, end: 202207
  53. LACTULOSE [Concomitant]
     Active Substance: LACTULOSE
     Indication: Constipation
     Dosage: UNK, QD
     Route: 048
     Dates: start: 20220724, end: 20220724
  54. THYMALFASIN FOR INJECTION [Concomitant]
     Indication: Immune system disorder
     Dosage: 1.6 MG, QD
     Route: 058
     Dates: start: 20220725, end: 20220725

REACTIONS (1)
  - Retinal haemorrhage [Recovered/Resolved]

NARRATIVE: CASE EVENT DATE: 20220812
